FAERS Safety Report 16648931 (Version 1)
Quarter: 2019Q3

REPORT INFORMATION
  Report Type: Spontaneous
  Country: US (occurrence: US)
  Receive Date: 20190730
  Receipt Date: 20190730
  Transmission Date: 20191004
  Serious: Yes (Other)
  Sender: FDA-Public Use
  Company Number: US-AKORN PHARMACEUTICALS-2019AKN01592

PATIENT
  Age: 21 Year
  Sex: Female
  Weight: 68.03 kg

DRUGS (3)
  1. MYORISAN [Suspect]
     Active Substance: ISOTRETINOIN
     Indication: HIDRADENITIS
     Dosage: 30 MG, 1X/DAY
     Route: 048
     Dates: start: 20190620, end: 20190711
  2. NEXPLANON [Concomitant]
     Active Substance: ETONOGESTREL
  3. HUMIRA [Concomitant]
     Active Substance: ADALIMUMAB
     Indication: HIDRADENITIS
     Dosage: UNK
     Dates: start: 2017

REACTIONS (3)
  - Off label use [Recovered/Resolved]
  - Negative thoughts [Recovered/Resolved]
  - Mood altered [Recovered/Resolved]

NARRATIVE: CASE EVENT DATE: 2019
